FAERS Safety Report 7291763-9 (Version None)
Quarter: 2011Q1

REPORT INFORMATION
  Report Type: 
  Country: None (occurrence: None)
  Receive Date: 20110214
  Receipt Date: 20110211
  Transmission Date: 20110831
  Serious: Yes (Hospitalization, Other)
  Sender: FDA-Public Use
  Company Number: US-PFIZER INC-2010039329

PATIENT
  Sex: Male
  Weight: 102.95 kg

DRUGS (7)
  1. CHANTIX [Suspect]
     Indication: SMOKING CESSATION THERAPY
     Dosage: 0.5 MG, 1X/DAY
     Route: 048
     Dates: start: 20090101, end: 20090101
  2. VISTARIL [Concomitant]
     Indication: ANTIALLERGIC THERAPY
     Dosage: UNK
  3. CHANTIX [Suspect]
     Dosage: UNK
     Dates: start: 20100401, end: 20100401
  4. PROLIXIN [Concomitant]
     Indication: SCHIZOPHRENIA
     Dosage: 10 MG, UNK
  5. CHANTIX [Suspect]
     Dosage: 1 MG, 2X/DAY
     Route: 048
     Dates: start: 20090101
  6. CHANTIX [Suspect]
     Dosage: 1 MG, UNK
     Route: 048
     Dates: start: 20100301, end: 20100301
  7. BENADRYL [Concomitant]
     Dosage: 50 MG, 2X/DAY

REACTIONS (11)
  - SUICIDAL IDEATION [None]
  - AGGRESSION [None]
  - LETHARGY [None]
  - DYSPNOEA [None]
  - BRONCHITIS [None]
  - HOSTILITY [None]
  - PSYCHOTIC DISORDER [None]
  - DEPRESSION [None]
  - WHITE BLOOD CELL COUNT INCREASED [None]
  - FEELING ABNORMAL [None]
  - AGITATION [None]
